FAERS Safety Report 19943505 (Version 1)
Quarter: 2021Q4

REPORT INFORMATION
  Report Type: Spontaneous
  Country: US (occurrence: US)
  Receive Date: 20211009
  Receipt Date: 20211009
  Transmission Date: 20220303
  Serious: Yes (Life-Threatening, Disabling)
  Sender: FDA-Public Use
  Company Number: None

PATIENT
  Age: 67 Year
  Sex: Female
  Weight: 57.6 kg

DRUGS (7)
  1. ARMOUR THYROID [Suspect]
     Active Substance: THYROID, PORCINE
     Indication: Hypothyroidism
     Dosage: QUANTITY:1 TABLET(S);
     Route: 048
  2. METOPROLOL [Concomitant]
     Active Substance: METOPROLOL
  3. ARMOUR THYROID [Concomitant]
     Active Substance: THYROID, PORCINE
  4. POTASSIUM [Concomitant]
     Active Substance: POTASSIUM
  5. MAGNESIUM [Concomitant]
     Active Substance: MAGNESIUM
  6. VITAMIN D3 [Concomitant]
     Active Substance: CHOLECALCIFEROL
  7. VITAMIN C [Concomitant]
     Active Substance: ASCORBIC ACID

REACTIONS (13)
  - Diarrhoea [None]
  - Blood potassium decreased [None]
  - Tachycardia [None]
  - Weight decreased [None]
  - Allergy to chemicals [None]
  - Glomerulosclerosis [None]
  - Documented hypersensitivity to administered product [None]
  - Muscle contracture [None]
  - Hypokinesia [None]
  - Application site urticaria [None]
  - Heart rate abnormal [None]
  - Heart rate increased [None]
  - Toxicity to various agents [None]

NARRATIVE: CASE EVENT DATE: 20211008
